FAERS Safety Report 8183277-9 (Version None)
Quarter: 2012Q1

REPORT INFORMATION
  Report Type: 
  Country: None (occurrence: None)
  Receive Date: 20120305
  Receipt Date: 20120227
  Transmission Date: 20120608
  Serious: Yes (Congenital Anomaly, Other)
  Sender: FDA-Public Use
  Company Number: US-TEVA-325035USA

PATIENT

DRUGS (3)
  1. PHENYTOIN [Suspect]
     Dosage: 500MG AT LAST MENSTRUAL PERIOD
     Route: 064
  2. LAMOTRIGINE [Suspect]
     Dosage: 300MG
     Route: 064
  3. VALPROIC ACID [Suspect]
     Dosage: 3000MG
     Route: 064

REACTIONS (4)
  - TALIPES [None]
  - MUSCLE CONTRACTURE [None]
  - DEXTROCARDIA [None]
  - SYNOSTOSIS [None]
